FAERS Safety Report 20123710 (Version 2)
Quarter: 2022Q2

REPORT INFORMATION
  Report Type: Spontaneous
  Country: US (occurrence: US)
  Receive Date: 20211129
  Receipt Date: 20220619
  Transmission Date: 20220721
  Serious: Yes (Other)
  Sender: FDA-Public Use
  Company Number: US-GILEAD-2021-0557148

PATIENT
  Sex: Male
  Weight: 72.562 kg

DRUGS (7)
  1. TRUVADA [Suspect]
     Active Substance: EMTRICITABINE\TENOFOVIR DISOPROXIL FUMARATE
     Indication: HIV infection
     Dosage: UNK
     Route: 048
     Dates: start: 2014, end: 2019
  2. PREZCOBIX [Concomitant]
     Active Substance: COBICISTAT\DARUNAVIR ETHANOLATE
  3. TIVICAY [Concomitant]
     Active Substance: DOLUTEGRAVIR SODIUM
  4. AMLODIPINE [Concomitant]
     Active Substance: AMLODIPINE BESYLATE
  5. ASPIRIN [Concomitant]
     Active Substance: ASPIRIN
  6. ALLOPURINOL [Concomitant]
     Active Substance: ALLOPURINOL
  7. ROSUVASTATIN [Concomitant]
     Active Substance: ROSUVASTATIN

REACTIONS (12)
  - Chronic kidney disease [Unknown]
  - Pain [Not Recovered/Not Resolved]
  - Emotional distress [Not Recovered/Not Resolved]
  - Anxiety [Not Recovered/Not Resolved]
  - Anhedonia [Not Recovered/Not Resolved]
  - Asthenia [Not Recovered/Not Resolved]
  - Fatigue [Not Recovered/Not Resolved]
  - Gait disturbance [Not Recovered/Not Resolved]
  - Dysstasia [Not Recovered/Not Resolved]
  - Loss of personal independence in daily activities [Not Recovered/Not Resolved]
  - Impaired work ability [Not Recovered/Not Resolved]
  - Mobility decreased [Not Recovered/Not Resolved]

NARRATIVE: CASE EVENT DATE: 20190101
